FAERS Safety Report 5880237-5 (Version None)
Quarter: 2008Q3

REPORT INFORMATION
  Report Type: 
  Country: None (occurrence: None)
  Receive Date: 20080911
  Receipt Date: 20080911
  Transmission Date: 20090109
  Serious: No
  Sender: FDA-Public Use
  Company Number: None

PATIENT
  Sex: Female
  Weight: 62.415 kg

DRUGS (1)
  1. PRAVASTATIN [Suspect]
     Indication: HYPERLIPIDAEMIA
     Dosage: 1 TAB QD ORAL
     Route: 048
     Dates: start: 20080707, end: 20080804

REACTIONS (3)
  - FEELING JITTERY [None]
  - PAROSMIA [None]
  - SLEEP DISORDER [None]
